FAERS Safety Report 11295994 (Version 1)
Quarter: 2015Q3

REPORT INFORMATION
  Report Type: Spontaneous
  Country: US (occurrence: None)
  Receive Date: 20150722
  Receipt Date: 20150722
  Transmission Date: 20151125
  Serious: Yes (Hospitalization)
  Sender: FDA-Public Use
  Company Number: None

PATIENT
  Age: 23 Year
  Sex: Female
  Weight: 64.5 kg

DRUGS (6)
  1. PALIPERIDONE [Concomitant]
     Active Substance: PALIPERIDONE
  2. OLANZAPINE. [Concomitant]
     Active Substance: OLANZAPINE
  3. ACETAMINOPHEN. [Concomitant]
     Active Substance: ACETAMINOPHEN
  4. AZITHROMYCIN [Concomitant]
     Active Substance: AZITHROMYCIN ANHYDROUS
  5. MULTIVITAMIN [Concomitant]
     Active Substance: VITAMINS
  6. CARBAMAZEPINE 300MG [Suspect]
     Active Substance: CARBAMAZEPINE
     Indication: AFFECTIVE DISORDER
     Dosage: VARIED
     Route: 048
     Dates: start: 20150430, end: 20150526

REACTIONS (9)
  - Dysphagia [None]
  - Eye irritation [None]
  - Ocular hyperaemia [None]
  - Drug ineffective [None]
  - Eye pain [None]
  - Pyrexia [None]
  - Pharyngitis streptococcal [None]
  - Eyelid margin crusting [None]
  - Stevens-Johnson syndrome [None]

NARRATIVE: CASE EVENT DATE: 20150525
